FAERS Safety Report 14912364 (Version 1)
Quarter: 2018Q2

REPORT INFORMATION
  Report Type: Spontaneous
  Country: BE (occurrence: BE)
  Receive Date: 20180501
  Receipt Date: 20180501
  Transmission Date: 20180711
  Serious: No
  Sender: FDA-Public Use
  Company Number: None

PATIENT
  Age: 53 Year
  Sex: Male
  Weight: 71.2 kg

DRUGS (5)
  1. ETOPOSIDE (VP-16) [Suspect]
     Active Substance: ETOPOSIDE
     Dates: end: 20180307
  2. CARBOPLATIN. [Suspect]
     Active Substance: CARBOPLATIN
     Dates: end: 20180307
  3. IFOSFAMIDE. [Suspect]
     Active Substance: IFOSFAMIDE
     Dates: end: 20180209
  4. TAXOL [Suspect]
     Active Substance: PACLITAXEL
     Dates: end: 20180209
  5. NEULASTA [Suspect]
     Active Substance: PEGFILGRASTIM
     Dates: end: 20180309

REACTIONS (3)
  - Staphylococcal sepsis [None]
  - Staphylococcus test positive [None]
  - Febrile neutropenia [None]

NARRATIVE: CASE EVENT DATE: 20180314
